FAERS Safety Report 4668409-9 (Version None)
Quarter: 2005Q2

REPORT INFORMATION
  Report Type: 
  Country: None (occurrence: None)
  Receive Date: 20050523
  Receipt Date: 20050226
  Transmission Date: 20051028
  Serious: Yes (Other)
  Sender: FDA-Public Use
  Company Number: PHRM2005FR00955

PATIENT
  Age: 62 Year
  Sex: Female
  Weight: 60 kg

DRUGS (17)
  1. ZOMETA [Suspect]
     Indication: METASTASES TO BONE
     Dosage: 4 MG, QMO
     Route: 042
     Dates: start: 20030717, end: 20050218
  2. AREDIA [Suspect]
     Indication: METASTASES TO BONE
     Dosage: UNK, UNK
     Route: 042
     Dates: start: 20030101, end: 20030101
  3. DURAGESIC-100 [Concomitant]
     Indication: BONE PAIN
     Dates: start: 20010913
  4. ARIMIDEX [Concomitant]
     Indication: BREAST CANCER
     Dates: start: 20010809, end: 20030717
  5. FEMARA [Concomitant]
     Indication: BREAST CANCER
     Route: 048
     Dates: start: 20030717, end: 20030805
  6. VIOXX [Concomitant]
  7. ZOLPIDEM TARTRATE [Concomitant]
     Indication: INSOMNIA
  8. GAVISCON                                /GFR/ [Concomitant]
     Indication: STOMACH DISCOMFORT
  9. OGAST [Concomitant]
     Indication: STOMACH DISCOMFORT
     Dates: start: 20030923
  10. CALCIUM GLUCONATE [Concomitant]
     Route: 048
  11. AROMASIN [Concomitant]
     Indication: BREAST CANCER
     Dates: start: 20040805, end: 20041018
  12. FASLODEX [Concomitant]
     Indication: BREAST CANCER
     Dates: start: 20041018
  13. XELODA [Concomitant]
     Dosage: 1 DF, TIW
     Dates: end: 20040301
  14. XELODA [Concomitant]
     Dosage: 2000 MG/M2/DAY
     Dates: start: 20050128
  15. RADIOTHERAPY [Concomitant]
     Dates: start: 20040408, end: 20040427
  16. SOLUPRED [Concomitant]
     Dosage: 60 MG DAILY
     Dates: start: 20040408, end: 20040427
  17. ANTIBIOTICS [Concomitant]
     Dates: end: 20050123

REACTIONS (12)
  - BRAIN OEDEMA [None]
  - COORDINATION ABNORMAL [None]
  - ERYTHEMA [None]
  - GAIT DISTURBANCE [None]
  - GINGIVITIS [None]
  - JAW DISORDER [None]
  - METASTASES TO CENTRAL NERVOUS SYSTEM [None]
  - METASTASES TO MENINGES [None]
  - OSTEITIS [None]
  - OSTEONECROSIS [None]
  - SCINTIGRAPHY [None]
  - WEIGHT DECREASED [None]
